FAERS Safety Report 6961026-7 (Version None)
Quarter: 2010Q3

REPORT INFORMATION
  Report Type: 
  Country: None (occurrence: None)
  Receive Date: 20100901
  Receipt Date: 20100825
  Transmission Date: 20110219
  Serious: Yes (Death)
  Sender: FDA-Public Use
  Company Number: JP-MERCK-1008USA03706

PATIENT
  Age: 63 Year
  Sex: Female

DRUGS (16)
  1. JANUVIA [Suspect]
     Indication: DIABETES MELLITUS
     Dosage: 1 MG AND EUMUNAE 2 MG AFTER SUPPER
     Route: 048
     Dates: start: 20100525, end: 20100730
  2. LOXONIN [Concomitant]
     Indication: BACK PAIN
     Route: 048
     Dates: end: 20100730
  3. TAKEPRON [Concomitant]
     Indication: GASTRITIS
     Route: 048
     Dates: end: 20100730
  4. ADOFEED [Concomitant]
     Indication: BACK PAIN
     Route: 061
     Dates: end: 20100730
  5. GLYBURIDE [Concomitant]
     Indication: DIABETES MELLITUS
     Route: 048
     Dates: start: 20100525, end: 20100719
  6. GLYBURIDE [Concomitant]
     Route: 048
     Dates: start: 20100720, end: 20100730
  7. EPADEL [Concomitant]
     Indication: DYSLIPIDAEMIA
     Route: 048
     Dates: end: 20100730
  8. MELBIN [Concomitant]
     Indication: DIABETES MELLITUS
     Route: 048
     Dates: end: 20100730
  9. DIAZEPAM [Concomitant]
     Indication: SCHIZOPHRENIA
     Route: 048
     Dates: start: 20100720, end: 20100730
  10. RISPERDAL [Concomitant]
     Indication: SCHIZOPHRENIA
     Route: 048
     Dates: start: 20100720, end: 20100730
  11. RISPERDAL [Concomitant]
     Route: 048
     Dates: start: 20100720, end: 20100730
  12. AKINETON TABLETS [Concomitant]
     Indication: SCHIZOPHRENIA
     Route: 048
     Dates: start: 20100720, end: 20100730
  13. WINTERMIN [Concomitant]
     Route: 048
     Dates: start: 20100720, end: 20100730
  14. BENZALIN [Concomitant]
     Route: 048
     Dates: start: 20100720, end: 20100730
  15. AMOBAN [Concomitant]
     Route: 048
     Dates: start: 20100720, end: 20100730
  16. SERENACE [Concomitant]
     Route: 048
     Dates: start: 20100720, end: 20100730

REACTIONS (1)
  - CARDIAC ARREST [None]
